FAERS Safety Report 16072099 (Version 1)
Quarter: 2019Q1

REPORT INFORMATION
  Report Type: Spontaneous
  Country: US (occurrence: US)
  Receive Date: 20190314
  Receipt Date: 20190314
  Transmission Date: 20190418
  Serious: No
  Sender: FDA-Public Use
  Company Number: US-ASTRAZENECA-2019SE25899

PATIENT
  Age: 28363 Day
  Sex: Female

DRUGS (1)
  1. SYMBICORT [Suspect]
     Active Substance: BUDESONIDE\FORMOTEROL FUMARATE DIHYDRATE
     Indication: ASTHMA
     Dosage: 80-4.5 MCG, TWO INHALATIONS TWICE A DAY
     Route: 055
     Dates: start: 201712

REACTIONS (4)
  - Multiple allergies [Unknown]
  - Asthma [Unknown]
  - Dysphonia [Unknown]
  - Device defective [Unknown]

NARRATIVE: CASE EVENT DATE: 20190202
